FAERS Safety Report 10229706 (Version 1)
Quarter: 2014Q2

REPORT INFORMATION
  Report Type: Report from Study
  Country: BR (occurrence: BR)
  Receive Date: 20140611
  Receipt Date: 20140611
  Transmission Date: 20141212
  Serious: Yes (Hospitalization, Other)
  Sender: FDA-Public Use
  Company Number: PHHY2014BR069328

PATIENT
  Sex: Female
  Weight: 40 kg

DRUGS (10)
  1. ZOTEON [Suspect]
     Dosage: UNK UKN, UNK
  2. TOBRAMYCIN [Suspect]
     Indication: CYSTIC FIBROSIS
     Dosage: UNK UKN, BID
     Route: 055
  3. CIPROFLOXACIN [Suspect]
     Indication: CYSTIC FIBROSIS
     Dosage: 1 DF, BID (EVERY 12 HOURS)
     Dates: start: 2012
  4. AZITHROMYCIN [Suspect]
     Indication: CYSTIC FIBROSIS
     Dosage: 3 DF, EVERY WEEK
     Dates: start: 2012
  5. OMEPRAZOLE [Suspect]
     Indication: ABDOMINAL DISCOMFORT
     Dosage: 1 DF, DAILY
     Dates: start: 2012
  6. PREDNISONE [Suspect]
     Indication: CYSTIC FIBROSIS
     Dosage: 1 DF, DAILY
     Dates: start: 2012
  7. PANCREATIN [Suspect]
     Indication: CYSTIC FIBROSIS
     Dosage: UNK UKN, UNK (2.5 MG)
     Dates: start: 2012
  8. PANCREATIN [Suspect]
     Dosage: UNK UKN, UNK (10 MG)
     Dates: start: 2012
  9. CLEXANE [Suspect]
     Indication: CYSTIC FIBROSIS
     Dosage: UNK UKN, UNK
     Dates: start: 2013
  10. EMAMA [Suspect]
     Indication: CYSTIC FIBROSIS
     Dosage: 1 DF, DAILY
     Dates: start: 2012

REACTIONS (4)
  - Anaemia [Recovering/Resolving]
  - Cyanosis [Recovering/Resolving]
  - Swelling [Recovering/Resolving]
  - Fatigue [Recovering/Resolving]
